FAERS Safety Report 6491143-X (Version None)
Quarter: 2009Q4

REPORT INFORMATION
  Report Type: 
  Country: None (occurrence: None)
  Receive Date: 20091211
  Receipt Date: 20091201
  Transmission Date: 20100525
  Serious: Yes (Hospitalization)
  Sender: FDA-Public Use
  Company Number: US-JNJFOC-20091201434

PATIENT
  Sex: Female
  Weight: 48 kg

DRUGS (3)
  1. REMICADE [Suspect]
     Dosage: THIS DOSE HAD BEEN SCHEDULED FOR 8-JUL-2009 BUT WAS GIVEN ON 01-JUL-2009
     Route: 042
  2. REMICADE [Suspect]
     Indication: CROHN'S DISEASE
     Route: 042
  3. 5-ASA [Concomitant]
     Route: 048

REACTIONS (1)
  - CROHN'S DISEASE [None]
